FAERS Safety Report 20959439 (Version 18)
Quarter: 2025Q4

REPORT INFORMATION
  Report Type: Report from Study
  Country: CA (occurrence: CA)
  Receive Date: 20220614
  Receipt Date: 20251109
  Transmission Date: 20260117
  Serious: Yes (Hospitalization)
  Sender: BIOGEN
  Company Number: CA-BIOGEN-2022BI01115026

PATIENT
  Age: 52 Year
  Sex: Female

DRUGS (16)
  1. TYSABRI [Suspect]
     Active Substance: NATALIZUMAB
     Indication: Relapsing-remitting multiple sclerosis
     Dosage: 4-8 WEEKS
     Route: 042
  2. TYSABRI [Suspect]
     Active Substance: NATALIZUMAB
     Indication: Multiple sclerosis
  3. TYSABRI [Suspect]
     Active Substance: NATALIZUMAB
     Dosage: Q 4-8 WEEKS
     Route: 042
  4. TYSABRI [Suspect]
     Active Substance: NATALIZUMAB
     Dosage: Q4-8 WEEKS
     Route: 042
  5. TYSABRI [Suspect]
     Active Substance: NATALIZUMAB
     Dosage: Q4-8 WEEKS
     Route: 042
  6. TYSABRI [Suspect]
     Active Substance: NATALIZUMAB
     Dosage: 4-8 WEEKS
     Route: 042
  7. TYSABRI [Suspect]
     Active Substance: NATALIZUMAB
     Dosage: EVERY 4 TO 6 WEEKS
  8. TYSABRI [Suspect]
     Active Substance: NATALIZUMAB
     Dosage: Q4-5 WEEKS
  9. TYSABRI [Suspect]
     Active Substance: NATALIZUMAB
     Dosage: Q4-8WEEKS
     Route: 042
  10. TYSABRI [Suspect]
     Active Substance: NATALIZUMAB
     Route: 042
  11. TYSABRI [Suspect]
     Active Substance: NATALIZUMAB
     Dosage: Q4 TO 8 WEEKS
     Dates: start: 20160119, end: 20251021
  12. TYSABRI [Suspect]
     Active Substance: NATALIZUMAB
     Dosage: Q6 TO 8 WEEKS
  13. PREDNISONE [Interacting]
     Active Substance: PREDNISONE
     Indication: Multiple sclerosis relapse
  14. PREDNISONE [Interacting]
     Active Substance: PREDNISONE
     Indication: Crohn^s disease
     Dosage: DOSAGE TEXT:3 DAYS
  15. PREDNISONE [Interacting]
     Active Substance: PREDNISONE
  16. PREDNISONE [Interacting]
     Active Substance: PREDNISONE

REACTIONS (8)
  - Crohn^s disease [Recovered/Resolved]
  - Multiple sclerosis [Not Recovered/Not Resolved]
  - Arthralgia [Not Recovered/Not Resolved]
  - Muscle spasms [Not Recovered/Not Resolved]
  - Drug interaction [Not Recovered/Not Resolved]
  - Gait disturbance [Unknown]
  - Multiple sclerosis relapse [Recovered/Resolved]
  - Prescribed underdose [Not Recovered/Not Resolved]

NARRATIVE: CASE EVENT DATE: 20220401
